FAERS Safety Report 4818140-1 (Version None)
Quarter: 2005Q4

REPORT INFORMATION
  Report Type: 
  Country: None (occurrence: None)
  Receive Date: 20051102
  Receipt Date: 20051024
  Transmission Date: 20060501
  Serious: Yes (Death)
  Sender: FDA-Public Use
  Company Number: JP-SANOFI-SYNTHELABO-A01200507285

PATIENT
  Age: 59 Year
  Sex: Female

DRUGS (3)
  1. OXALIPLATIN [Suspect]
     Dosage: 100 MG/BODY, DR, D1
     Dates: start: 20051011, end: 20051011
  2. FLUOROURACIL [Suspect]
     Dosage: 500 MG/BODY IN BOLUS THEN 750 MG/BODY AS CONTINUOUS INFUSION, D1+2
     Dates: start: 20051011, end: 20051012
  3. CALCIUM LEVOFOLINATE [Concomitant]
     Dosage: 125 MG/BODY, DR, D1+2
     Dates: start: 20051011, end: 20051012

REACTIONS (5)
  - ABDOMINAL PAIN [None]
  - DIARRHOEA [None]
  - NAUSEA [None]
  - PALLOR [None]
  - VOMITING [None]
